FAERS Safety Report 5688311-3 (Version None)
Quarter: 2008Q1

REPORT INFORMATION
  Report Type: 
  Country: None (occurrence: None)
  Receive Date: 20080328
  Receipt Date: 20080328
  Transmission Date: 20080703
  Serious: Yes (Other)
  Sender: FDA-Public Use
  Company Number: None

PATIENT
  Sex: Female
  Weight: 14.5151 kg

DRUGS (2)
  1. SINGULAIR [Suspect]
     Indication: ASTHMA
     Dosage: 1 TABLET DAILY PO
     Route: 048
     Dates: start: 20050701, end: 20070501
  2. SINGULAIR [Suspect]
     Indication: MULTIPLE ALLERGIES
     Dosage: 1 TABLET DAILY PO
     Route: 048
     Dates: start: 20050701, end: 20070501

REACTIONS (7)
  - ANGER [None]
  - CONVULSION [None]
  - CRYING [None]
  - INDIFFERENCE [None]
  - PSYCHOTIC DISORDER [None]
  - SCREAMING [None]
  - THINKING ABNORMAL [None]
